FAERS Safety Report 5793612-4 (Version None)
Quarter: 2008Q2

REPORT INFORMATION
  Report Type: 
  Country: None (occurrence: None)
  Receive Date: 20080627
  Receipt Date: 20080617
  Transmission Date: 20081010
  Serious: Yes (Other)
  Sender: FDA-Public Use
  Company Number: IN-BRISTOL-MYERS SQUIBB COMPANY-14187983

PATIENT
  Age: 61 Year
  Sex: Female
  Weight: 43 kg

DRUGS (7)
  1. BLINDED: APIXABAN [Suspect]
     Indication: THROMBOSIS PROPHYLAXIS
     Dosage: DRUG INTERRUPTED ON 12MAY08,THERAPY DATE-07JAN08-12MAY08
     Route: 048
     Dates: start: 20080107
  2. WARFARIN SODIUM [Suspect]
     Indication: THROMBOSIS PROPHYLAXIS
     Dosage: DRUG INTERRUPTED ON 12MAY08,THERAPY DATE-07JAN08-12MAY08
     Route: 048
     Dates: start: 20080107
  3. BLINDED: PLACEBO [Suspect]
     Indication: THROMBOSIS PROPHYLAXIS
     Dosage: DRUG INTERRUPTED ON 12MAY08,THERAPY DATE-07JAN08-12MAY08
     Route: 048
     Dates: start: 20080107
  4. LOSARTAN POTASSIUM [Concomitant]
     Route: 048
     Dates: start: 20071206
  5. LASIX [Concomitant]
     Route: 048
     Dates: start: 20071206
  6. PANTOPRAZOLE SODIUM [Concomitant]
     Route: 048
     Dates: start: 20071206
  7. VERAPAMIL [Concomitant]
     Dates: start: 20080401

REACTIONS (3)
  - HEPATITIS ACUTE [None]
  - NAUSEA [None]
  - VOMITING [None]
